FAERS Safety Report 18252088 (Version 1)
Quarter: 2020Q3

REPORT INFORMATION
  Report Type: Spontaneous
  Country: US (occurrence: US)
  Receive Date: 20200910
  Receipt Date: 20200910
  Transmission Date: 20201103
  Serious: No
  Sender: FDA-Public Use
  Company Number: US-FARMAPROD-202004-0480

PATIENT
  Sex: Female

DRUGS (1)
  1. OXERVATE [Suspect]
     Active Substance: CENEGERMIN-BKBJ
     Indication: NEUROTROPHIC KERATOPATHY
     Route: 047

REACTIONS (7)
  - External ear pain [Unknown]
  - Influenza [Unknown]
  - Photophobia [Unknown]
  - Joint stiffness [Unknown]
  - Trismus [Unknown]
  - Eye irritation [Unknown]
  - Rhinalgia [Unknown]
